FAERS Safety Report 21848936 (Version 1)
Quarter: 2023Q1

REPORT INFORMATION
  Report Type: Spontaneous
  Country: US (occurrence: US)
  Receive Date: 20230111
  Receipt Date: 20230111
  Transmission Date: 20230417
  Serious: Yes (Other)
  Sender: FDA-Public Use
  Company Number: US-GLAXOSMITHKLINE-US2023AMR000642

PATIENT

DRUGS (2)
  1. LAMICTAL [Suspect]
     Active Substance: LAMOTRIGINE
     Indication: Product used for unknown indication
     Dosage: 150 MILIGRAM
  2. JAKAFI [Suspect]
     Active Substance: RUXOLITINIB
     Indication: Myeloproliferative neoplasm
     Dosage: 10 MILIGRAM,BID
     Route: 048
     Dates: start: 201912

REACTIONS (7)
  - Seizure [Unknown]
  - Myeloproliferative neoplasm [Unknown]
  - Drug hypersensitivity [Unknown]
  - Anxiety [Unknown]
  - Confusional state [Unknown]
  - Dyspnoea [Unknown]
  - Drug ineffective [Unknown]
